FAERS Safety Report 8081525-7 (Version None)
Quarter: 2012Q1

REPORT INFORMATION
  Report Type: 
  Country: None (occurrence: None)
  Receive Date: 20120130
  Receipt Date: 20120125
  Transmission Date: 20120608
  Serious: Yes (Death, Congenital Anomaly, Other)
  Sender: FDA-Public Use
  Company Number: US-PFIZER INC-2011089753

PATIENT
  Sex: Male
  Weight: 3 kg

DRUGS (10)
  1. PREVACID [Concomitant]
     Indication: GASTROOESOPHAGEAL REFLUX DISEASE
     Dosage: 30 MG, 1X/DAY
     Route: 064
     Dates: start: 20100128
  2. SERTRALINE HYDROCHLORIDE [Suspect]
     Dosage: 100 MG, 1X/DAY
     Route: 064
     Dates: start: 20090103, end: 20090801
  3. ZYRTEC [Concomitant]
     Indication: INFLUENZA
     Dosage: ONCE DAILY
     Route: 064
  4. ZITHROMAX [Concomitant]
     Indication: INFLUENZA
     Dosage: UNK
     Route: 064
     Dates: start: 20091117
  5. SERTRALINE HYDROCHLORIDE [Suspect]
     Dosage: 100 MG, ONE AND HALF TABLET EVERY MORNING
     Route: 064
     Dates: start: 20090801, end: 20100101
  6. VISTARIL [Concomitant]
     Dosage: AS NEEDED
     Route: 064
  7. ZOLOFT [Suspect]
     Indication: DEPRESSION
     Dosage: 150 MG, 1X/DAY
     Route: 064
     Dates: start: 20081107
  8. MULTI-VITAMINS [Concomitant]
     Dosage: UNK
     Route: 064
     Dates: start: 20091116
  9. TAMIFLU [Concomitant]
     Indication: INFLUENZA
     Dosage: 75 MG, 2X/DAY
     Route: 064
     Dates: start: 20091117
  10. AMBIEN [Concomitant]
     Indication: DEPRESSION
     Dosage: 10 MG, UNK
     Route: 064
     Dates: start: 20091015

REACTIONS (3)
  - CONGENITAL ANOMALY [None]
  - SUDDEN INFANT DEATH SYNDROME [None]
  - FOETAL EXPOSURE DURING PREGNANCY [None]
